FAERS Safety Report 11343738 (Version 2)
Quarter: 2015Q3

REPORT INFORMATION
  Report Type: Report from Study
  Country: US (occurrence: US)
  Receive Date: 20150806
  Receipt Date: 20150901
  Transmission Date: 20151125
  Serious: Yes (Other)
  Sender: FDA-Public Use
  Company Number: US-ABBVIE-15K-163-1437156-00

PATIENT
  Age: 85 Year
  Sex: Male

DRUGS (1)
  1. HUMIRA [Suspect]
     Active Substance: ADALIMUMAB
     Indication: PSORIATIC ARTHROPATHY
     Route: 065
     Dates: start: 201502

REACTIONS (4)
  - Lower extremity mass [Unknown]
  - Cyst [Recovered/Resolved]
  - Squamous cell carcinoma [Unknown]
  - Abscess limb [Recovered/Resolved]

NARRATIVE: CASE EVENT DATE: 201507
